FAERS Safety Report 6028209-4 (Version None)
Quarter: 2009Q1

REPORT INFORMATION
  Report Type: 
  Country: None (occurrence: None)
  Receive Date: 20090106
  Receipt Date: 20081223
  Transmission Date: 20090719
  Serious: Yes (Life-Threatening)
  Sender: FDA-Public Use
  Company Number: AT-CELGENEUS-AZAAT200800379

PATIENT
  Sex: Male
  Weight: 82 kg

DRUGS (10)
  1. VIDAZA [Suspect]
     Route: 058
     Dates: start: 20080911, end: 20080918
  2. LOVENOX [Suspect]
     Indication: THROMBOSIS PROPHYLAXIS
     Dates: start: 20080911, end: 20080918
  3. L-VALIN [Suspect]
     Route: 065
  4. LASIX [Concomitant]
     Indication: DRUG USE FOR UNKNOWN INDICATION
  5. OMEC [Concomitant]
     Indication: DRUG USE FOR UNKNOWN INDICATION
  6. NAVOBAN [Concomitant]
     Indication: DRUG USE FOR UNKNOWN INDICATION
  7. TRAMADOL HCL [Concomitant]
     Indication: DRUG USE FOR UNKNOWN INDICATION
  8. COSOPT EYE DROPS [Concomitant]
     Indication: DRUG USE FOR UNKNOWN INDICATION
  9. XALATAN [Concomitant]
     Indication: DRUG USE FOR UNKNOWN INDICATION
  10. UROSIN [Concomitant]
     Indication: DRUG USE FOR UNKNOWN INDICATION

REACTIONS (1)
  - CYSTITIS HAEMORRHAGIC [None]
